FAERS Safety Report 5830307 (Version 2)
Quarter: 2017Q1

REPORT INFORMATION
  Report Type: Spontaneous
  Country: JP (occurrence: JP)
  Receive Date: 20050705
  Receipt Date: 20170207
  Transmission Date: 20170429
  Serious: Yes (Other)
  Sender: FDA-Public Use
  Company Number: JP-BRISTOL-MYERS SQUIBB COMPANY-13014311

PATIENT
  Age: 78 Year
  Sex: Female

DRUGS (1)
  1. FUNGIZONE [Suspect]
     Active Substance: AMPHOTERICIN B
     Indication: MONARTHRITIS
     Dosage: UNK
     Route: 042

REACTIONS (1)
  - Arthritis infective [Recovered/Resolved]
